FAERS Safety Report 16831084 (Version 1)
Quarter: 2019Q3

REPORT INFORMATION
  Report Type: Spontaneous
  Country: SE (occurrence: SE)
  Receive Date: 20190920
  Receipt Date: 20190920
  Transmission Date: 20191005
  Serious: Yes (Other)
  Sender: FDA-Public Use
  Company Number: SE-TEVA-2019-SE-1110128

PATIENT
  Age: 48 Year
  Sex: Male

DRUGS (1)
  1. MYFENAX [Suspect]
     Active Substance: MYCOPHENOLATE MOFETIL
     Dosage: 1000 MILLIGRAM DAILY;
     Route: 065
     Dates: start: 2003

REACTIONS (12)
  - Suicide attempt [Unknown]
  - Depression [Unknown]
  - Infertility [Unknown]
  - Herpes virus infection [Unknown]
  - Sleep disorder [Unknown]
  - Diarrhoea [Not Recovered/Not Resolved]
  - Suicidal ideation [Unknown]
  - Headache [Unknown]
  - Muscle atrophy [Not Recovered/Not Resolved]
  - Loss of personal independence in daily activities [Unknown]
  - Anxiety [Unknown]
  - Fatigue [Unknown]
